FAERS Safety Report 16916181 (Version 1)
Quarter: 2019Q4

REPORT INFORMATION
  Report Type: Spontaneous
  Country: US (occurrence: US)
  Receive Date: 20191014
  Receipt Date: 20191014
  Transmission Date: 20200122
  Serious: No
  Sender: FDA-Public Use
  Company Number: US-SA-2019SA275135

PATIENT
  Age: 17 Year
  Sex: Male

DRUGS (5)
  1. VYVANSE [Concomitant]
     Active Substance: LISDEXAMFETAMINE DIMESYLATE
  2. DESOXIMETASON [Concomitant]
     Active Substance: DESOXIMETASONE
  3. DUPIXENT [Suspect]
     Active Substance: DUPILUMAB
     Dosage: 300 MG, QOW
     Route: 058
     Dates: start: 20190716
  4. MUPIROCIN. [Concomitant]
     Active Substance: MUPIROCIN
  5. DESONIDE. [Concomitant]
     Active Substance: DESONIDE

REACTIONS (1)
  - Skin papilloma [Not Recovered/Not Resolved]
